FAERS Safety Report 19055852 (Version 1)
Quarter: 2021Q1

REPORT INFORMATION
  Report Type: Spontaneous
  Country: BE (occurrence: BE)
  Receive Date: 20210324
  Receipt Date: 20210324
  Transmission Date: 20210420
  Serious: Yes (Disabling)
  Sender: FDA-Public Use
  Company Number: BE-PFIZER INC-2021272749

PATIENT
  Age: 59 Year
  Sex: Female

DRUGS (6)
  1. MEDROL [Suspect]
     Active Substance: METHYLPREDNISOLONE
     Dosage: 1 DF, 1X/DAY (THE MORNING DURING 6 DAYS, ONE DAY INTAKE
  2. MOXIFLOXACIN SANDOZ [Suspect]
     Active Substance: MOXIFLOXACIN
     Dosage: 1 TABLET PER DAY TO FINISH THE BOTTLE)
     Route: 048
     Dates: start: 20200106
  3. BELLOZAL [Concomitant]
     Active Substance: BILASTINE
     Dosage: 1 DF, 1X/DAY (IN THE EVENING)20MG 1CO IN THE EVENING
  4. DEXAMETHASONE. [Concomitant]
     Active Substance: DEXAMETHASONE
     Dosage: 1 PILL OF DEXAMETHASONE AS A TEST 1MG 1 DAY
  5. L?THYROXINE [LEVOTHYROXINE SODIUM] [Concomitant]
     Active Substance: LEVOTHYROXINE SODIUM
     Dosage: IN THE MORNING ON AN EMPTY STOMACH
  6. DEPO?MEDROL [Suspect]
     Active Substance: METHYLPREDNISOLONE ACETATE
     Dosage: UNK

REACTIONS (9)
  - Vaginal infection [Recovered/Resolved with Sequelae]
  - Epicondylitis [Recovered/Resolved with Sequelae]
  - Pain in extremity [Recovered/Resolved with Sequelae]
  - Epicondylitis [Recovered/Resolved with Sequelae]
  - Arthralgia [Recovered/Resolved with Sequelae]
  - Plantar fasciitis [Recovered/Resolved with Sequelae]
  - Plantar fasciitis [Recovered/Resolved with Sequelae]
  - Epicondylitis [Recovered/Resolved with Sequelae]
  - Thyroid disorder [Recovered/Resolved with Sequelae]

NARRATIVE: CASE EVENT DATE: 202003
